FAERS Safety Report 4275503-3 (Version None)
Quarter: 2004Q1

REPORT INFORMATION
  Report Type: 
  Country: None (occurrence: None)
  Receive Date: 20040121
  Receipt Date: 20031121
  Transmission Date: 20041129
  Serious: Yes (Other)
  Sender: FDA-Public Use
  Company Number: US-GLAXOSMITHKLINE-A0440811A

PATIENT
  Age: 40 Year
  Sex: Female

DRUGS (4)
  1. ADVAIR DISKUS 100/50 [Suspect]
     Indication: ASTHMA
     Dosage: 1PUFF PER DAY
     Route: 055
  2. PRENATAL VITAMINS [Concomitant]
  3. MAXAIR [Concomitant]
  4. ASPIRIN [Concomitant]

REACTIONS (5)
  - ABORTION SPONTANEOUS [None]
  - COAGULATION FACTOR V LEVEL ABNORMAL [None]
  - COAGULOPATHY [None]
  - COMPLICATIONS OF MATERNAL EXPOSURE TO THERAPEUTIC DRUGS [None]
  - MATERNAL DRUGS AFFECTING FOETUS [None]
